FAERS Safety Report 10030820 (Version 1)
Quarter: 2014Q1

REPORT INFORMATION
  Report Type: Spontaneous
  Country: US (occurrence: US)
  Receive Date: 20140323
  Receipt Date: 20140323
  Transmission Date: 20141002
  Serious: No
  Sender: FDA-Public Use
  Company Number: US-ALLERGAN-1314541US

PATIENT
  Age: 31 Year
  Sex: Female

DRUGS (2)
  1. LATISSE 0.03% [Suspect]
     Indication: GROWTH OF EYELASHES
     Dosage: 1 DROP PER APPLICATOR, QHS
     Route: 061
     Dates: start: 201307
  2. LATISSE 0.03% [Suspect]
     Dosage: 1 DROP PER APPLICATOR, QHS
     Route: 061
     Dates: start: 2007, end: 2010

REACTIONS (3)
  - Exposure during pregnancy [Unknown]
  - Drug ineffective [Unknown]
  - Madarosis [Not Recovered/Not Resolved]
